FAERS Safety Report 15145006 (Version 4)
Quarter: 2019Q1

REPORT INFORMATION
  Report Type: Report from Study
  Country: KR (occurrence: KR)
  Receive Date: 20180713
  Receipt Date: 20190102
  Transmission Date: 20190417
  Serious: Yes (Hospitalization)
  Sender: FDA-Public Use
  Company Number: KR-JNJFOC-20180703350

PATIENT
  Age: 80 Year
  Sex: Female
  Weight: 50 kg

DRUGS (19)
  1. VARIDASE [Concomitant]
     Route: 065
     Dates: start: 20180623
  2. CEFTRIAXONE. [Concomitant]
     Active Substance: CEFTRIAXONE
     Route: 065
     Dates: start: 20180621
  3. CONCOR [Concomitant]
     Active Substance: BISOPROLOL FUMARATE
     Route: 065
     Dates: start: 20180214
  4. RYTMONORM [Concomitant]
     Active Substance: PROPAFENONE
     Route: 065
     Dates: start: 20180219
  5. FLASINYL [Concomitant]
     Route: 065
     Dates: start: 20180319, end: 20180402
  6. MUCOSTA [Concomitant]
     Active Substance: REBAMIPIDE
     Route: 065
     Dates: start: 20180517
  7. ROXITHROMYCIN [Concomitant]
     Active Substance: ROXITHROMYCIN
     Route: 065
     Dates: start: 20180528
  8. CLARICIDE [Concomitant]
     Route: 065
     Dates: start: 20180621
  9. XARELTO [Suspect]
     Active Substance: RIVAROXABAN
     Indication: ATRIAL FIBRILLATION
     Route: 048
     Dates: start: 20180219
  10. SINGULAIR [Concomitant]
     Active Substance: MONTELUKAST SODIUM
     Route: 065
     Dates: start: 20180319
  11. CODEINE PHOSPHATE [Concomitant]
     Active Substance: CODEINE PHOSPHATE
     Route: 065
     Dates: start: 20180528, end: 20180607
  12. CODEINE PHOSPHATE [Concomitant]
     Active Substance: CODEINE PHOSPHATE
     Route: 065
     Dates: start: 20180621
  13. TYRENOL [Concomitant]
     Route: 065
     Dates: start: 20180621
  14. ILAPRAZOLE [Concomitant]
     Active Substance: ILAPRAZOLE
     Route: 065
     Dates: start: 20180206
  15. ALUMINIUM HYDROXIDE W/MAGNESIUM HYDROXIDE [Concomitant]
     Active Substance: ALUMINUM HYDROXIDE\MAGNESIUM HYDROXIDE
     Route: 065
     Dates: start: 20180517
  16. TETRACYCLINE [Concomitant]
     Active Substance: TETRACYCLINE
     Route: 065
     Dates: start: 20180319, end: 20180402
  17. CRAVIT [Concomitant]
     Active Substance: LEVOFLOXACIN
     Route: 065
     Dates: start: 20180528, end: 20180607
  18. XYZAL [Concomitant]
     Active Substance: LEVOCETIRIZINE DIHYDROCHLORIDE
     Route: 065
     Dates: start: 20180319
  19. LEVOTUSS [Concomitant]
     Active Substance: LEVODROPROPIZINE
     Route: 065
     Dates: start: 20180528

REACTIONS (3)
  - Haemoglobin decreased [Not Recovered/Not Resolved]
  - Sepsis [Not Recovered/Not Resolved]
  - Pneumonia [Recovering/Resolving]

NARRATIVE: CASE EVENT DATE: 20180621
